FAERS Safety Report 25886150 (Version 2)
Quarter: 2025Q4

REPORT INFORMATION
  Report Type: Spontaneous
  Country: JP (occurrence: JP)
  Receive Date: 20251006
  Receipt Date: 20251128
  Transmission Date: 20260117
  Serious: Yes (Hospitalization, Other)
  Sender: ELI LILLY AND COMPANY
  Company Number: JP-ELI_LILLY_AND_COMPANY-JP202510001892

PATIENT
  Age: 61 Year
  Sex: Female
  Weight: 50.2 kg

DRUGS (31)
  1. MOUNJARO [Interacting]
     Active Substance: TIRZEPATIDE
     Indication: Type 2 diabetes mellitus
     Dosage: 2.5 MG, WEEKLY (1/W)
     Route: 058
     Dates: start: 20250414, end: 20250706
  2. MOUNJARO [Interacting]
     Active Substance: TIRZEPATIDE
     Dosage: 5 MG, WEEKLY (1/W)
     Route: 058
     Dates: start: 20250709
  3. PREDONINE [Interacting]
     Active Substance: PREDNISOLONE
     Indication: Sudden hearing loss
     Dosage: 20 MG, BID
     Route: 048
     Dates: start: 20250807, end: 20250809
  4. PREDONINE [Interacting]
     Active Substance: PREDNISOLONE
     Dosage: 10 MG, BID
     Route: 048
     Dates: start: 20250810, end: 20250812
  5. TRESIBA [Concomitant]
     Active Substance: INSULIN DEGLUDEC
     Indication: Type 2 diabetes mellitus
     Dosage: 12 UNIT DAILY (10 UNIT DAILY ON THE DIALYSIS DAY)
     Route: 058
     Dates: start: 20190228, end: 20190929
  6. TRESIBA [Concomitant]
     Active Substance: INSULIN DEGLUDEC
     Dosage: 13 UNIT DAILY (11 UNIT DAILY ON THE DIALYSIS DAY)
     Route: 058
     Dates: start: 20190930, end: 20210314
  7. TRESIBA [Concomitant]
     Active Substance: INSULIN DEGLUDEC
     Dosage: 14 UNIT DAILY (13 UNIT DAILY ON THE DIALYSIS DAY)
     Route: 058
     Dates: start: 20210315, end: 20211205
  8. TRESIBA [Concomitant]
     Active Substance: INSULIN DEGLUDEC
     Dosage: 15 UNIT DAILY (13 UNIT DAILY ON THE DIALYSIS DAY)
     Route: 058
     Dates: start: 20211206, end: 20211226
  9. TRESIBA [Concomitant]
     Active Substance: INSULIN DEGLUDEC
     Dosage: 16 UNIT DAILY (14 UNIT DAILY ON THE DIALYSIS DAY)
     Route: 058
     Dates: start: 20211227, end: 20220116
  10. TRESIBA [Concomitant]
     Active Substance: INSULIN DEGLUDEC
     Dosage: 17 UNIT DAILY (14 UNIT DAILY ON THE DIALYSIS DAY)
     Route: 058
     Dates: start: 20220117, end: 20240908
  11. TRESIBA [Concomitant]
     Active Substance: INSULIN DEGLUDEC
     Dosage: 15 UNIT DAILY (13 UNIT DAILY ON THE DIALYSIS DAY)
     Route: 058
     Dates: start: 20240909, end: 20250513
  12. TRESIBA [Concomitant]
     Active Substance: INSULIN DEGLUDEC
     Dosage: 12 UNIT DAILY (10 UNIT DAILY ON THE DIALYSIS DAY)
     Route: 058
     Dates: start: 20250514, end: 20250610
  13. TRESIBA [Concomitant]
     Active Substance: INSULIN DEGLUDEC
     Dosage: 9 UNIT DAILY (7 UNIT DAILY ON THE DIALYSIS DAY)
     Route: 058
     Dates: start: 20250611, end: 20250708
  14. TRESIBA [Concomitant]
     Active Substance: INSULIN DEGLUDEC
     Dosage: 7 UNIT DAILY (5 UNIT DAILY ON THE DIALYSIS DAY)
     Route: 058
     Dates: start: 20250709, end: 20250820
  15. TRESIBA [Concomitant]
     Active Substance: INSULIN DEGLUDEC
     Dosage: 5 UNIT DAILY (3 UNIT DAILY ON THE DIALYSIS DAY)
     Route: 058
     Dates: start: 20250821, end: 20250831
  16. REPAGLINIDE [Concomitant]
     Active Substance: REPAGLINIDE
     Indication: Type 2 diabetes mellitus
     Dosage: 0.75 MG, BID
     Route: 048
     Dates: start: 20241009, end: 20250513
  17. REPAGLINIDE [Concomitant]
     Active Substance: REPAGLINIDE
     Dosage: 0.5 MG, BID
     Route: 048
     Dates: start: 20250514
  18. MIGLITOL [Concomitant]
     Active Substance: MIGLITOL
     Indication: Type 2 diabetes mellitus
     Dosage: 50 MG, DAILY
     Route: 048
     Dates: start: 20240809, end: 20250316
  19. MIGLITOL [Concomitant]
     Active Substance: MIGLITOL
     Dosage: 50 MG, BID
     Route: 048
     Dates: start: 20250317
  20. NIFEDIPINE [Concomitant]
     Active Substance: NIFEDIPINE
     Dosage: 20 MG, BID, NON-DIALYSIS DAY ONLY
     Route: 048
  21. TELMISARTAN [Concomitant]
     Active Substance: TELMISARTAN
     Dosage: 20 MG, BID, NON-DIALYSIS DAY ONLY
     Route: 048
  22. FEBUXOSTAT [Concomitant]
     Active Substance: FEBUXOSTAT
     Dosage: 10 MG, DAILY
  23. VONOPRAZAN FUMARATE [Concomitant]
     Active Substance: VONOPRAZAN FUMARATE
     Dosage: 10 MG, DAILY
  24. CLOPIDOGREL [Concomitant]
     Active Substance: CLOPIDOGREL BISULFATE
     Dosage: 75 MG, DAILY
  25. ROSUVASTATIN [Concomitant]
     Active Substance: ROSUVASTATIN
     Dosage: 2.5 MG, DAILY
  26. CALTAN OD [Concomitant]
     Dosage: 250 MG, BID
  27. SUCROFERRIC OXYHYDROXIDE [Concomitant]
     Active Substance: SUCROFERRIC OXYHYDROXIDE
     Dosage: 250 MG, BID
  28. RILMAZAFONE HYDROCHLORIDE [Concomitant]
     Active Substance: RILMAZAFONE HYDROCHLORIDE
     Dosage: 2 MG, DAILY
  29. AMEZINIUM METILSULFATE [Concomitant]
     Active Substance: AMEZINIUM METILSULFATE
     Dosage: 10 MG, DAILY, ONLY DIALYSIS DAY
     Dates: end: 20250829
  30. ALFACALCIDOL [Concomitant]
     Active Substance: ALFACALCIDOL
     Dosage: 0.25 UG, DAILY
  31. HERBALS [Concomitant]
     Active Substance: HERBALS
     Dosage: 2.5 G, TID

REACTIONS (6)
  - Chronic gastritis [Recovered/Resolved]
  - Sudden hearing loss [Recovered/Resolved with Sequelae]
  - Drug interaction [Unknown]
  - Off label use [Unknown]
  - Polyp [Unknown]
  - Dizziness [Unknown]

NARRATIVE: CASE EVENT DATE: 20250806
